FAERS Safety Report 25126680 (Version 2)
Quarter: 2025Q2

REPORT INFORMATION
  Report Type: Spontaneous
  Country: PT (occurrence: PT)
  Receive Date: 20250327
  Receipt Date: 20250416
  Transmission Date: 20250717
  Serious: Yes (Other)
  Sender: MERCK SHARP AND DOHME
  Company Number: None

PATIENT
  Age: 59 Year
  Sex: Male

DRUGS (9)
  1. KEYTRUDA [Suspect]
     Active Substance: PEMBROLIZUMAB
     Indication: Lung adenocarcinoma
     Dosage: STRENGTH: 25 MG/ML
     Route: 042
     Dates: start: 20250219
  2. POLYETHYLENE GLYCOLS [Concomitant]
     Active Substance: POLYETHYLENE GLYCOLS
     Route: 048
  3. ASPIRIN [Concomitant]
     Active Substance: ASPIRIN
     Dosage: 1TAB [TABLET] AT LUNCH
  4. BISACODYL [Concomitant]
     Active Substance: BISACODYL
     Dosage: 1CP AT BEDTIME
  5. FUROSEMIDE [Concomitant]
     Active Substance: FUROSEMIDE
     Dosage: 1 TABLET ON AN EMPTY STOMACH
  6. ATORVASTATIN [Concomitant]
     Active Substance: ATORVASTATIN
     Dosage: 1TAB [TABLET] AT DINNER
  7. PANTOPRAZOLE [Concomitant]
     Active Substance: PANTOPRAZOLE
     Dosage: 1 ON AN EMPTY STOMACH
  8. CARBOPLATIN [Concomitant]
     Active Substance: CARBOPLATIN
  9. PEMETREXED [Concomitant]
     Active Substance: PEMETREXED

REACTIONS (1)
  - Thrombocytosis [Recovered/Resolved]

NARRATIVE: CASE EVENT DATE: 20250311
